FAERS Safety Report 14789100 (Version 1)
Quarter: 2018Q2

REPORT INFORMATION
  Report Type: Spontaneous
  Country: US (occurrence: US)
  Receive Date: 20180413
  Receipt Date: 20180413
  Transmission Date: 20180711
  Serious: Yes (Hospitalization)
  Sender: FDA-Public Use
  Company Number: None

PATIENT
  Age: 55 Year
  Sex: Male

DRUGS (5)
  1. ENALAPRIL 10MG DAILY [Concomitant]
  2. METFORMIN 500MG BID [Concomitant]
  3. GABAPENTIN 600MG TID [Concomitant]
  4. FLOURESCEIN [Suspect]
     Active Substance: FLUORESCEIN
     Dosage: ?          OTHER FREQUENCY:ONCE;?
  5. LANTUS 35 UNITS DAILY [Concomitant]

REACTIONS (5)
  - Nausea [None]
  - Hypotension [None]
  - Hyperhidrosis [None]
  - Dyspnoea [None]
  - Syncope [None]

NARRATIVE: CASE EVENT DATE: 20171214
